FAERS Safety Report 6160529-5 (Version None)
Quarter: 2009Q2

REPORT INFORMATION
  Report Type: 
  Country: None (occurrence: None)
  Receive Date: 20090416
  Receipt Date: 20090409
  Transmission Date: 20091009
  Serious: Yes (Death, Other)
  Sender: FDA-Public Use
  Company Number: 2008JP005661

PATIENT
  Age: 5 Year
  Sex: Male
  Weight: 18.3 kg

DRUGS (27)
  1. FUNGUARD (MICAFUNGIN) INJECTION [Suspect]
     Indication: FEBRILE NEUTROPENIA
     Dosage: IV DRIP; 3 MG/KG, UNKNOWN/D, IV DRIP; 6 MG/KG, UNKNOWN/D, IV DRIP; 100 MG, UID/QD, IV DRIP
     Route: 041
     Dates: end: 20080301
  2. FUNGUARD (MICAFUNGIN) INJECTION [Suspect]
     Indication: FEBRILE NEUTROPENIA
     Dosage: IV DRIP; 3 MG/KG, UNKNOWN/D, IV DRIP; 6 MG/KG, UNKNOWN/D, IV DRIP; 100 MG, UID/QD, IV DRIP
     Route: 041
     Dates: start: 20080725, end: 20080927
  3. FUNGUARD (MICAFUNGIN) INJECTION [Suspect]
     Indication: FEBRILE NEUTROPENIA
     Dosage: IV DRIP; 3 MG/KG, UNKNOWN/D, IV DRIP; 6 MG/KG, UNKNOWN/D, IV DRIP; 100 MG, UID/QD, IV DRIP
     Route: 041
     Dates: start: 20080401
  4. PROGRAF [Suspect]
     Indication: BONE MARROW TRANSPLANT
  5. VANCOMYCIN [Concomitant]
  6. MINOPEN (MINOCYCLINE HYDROCHLORIDE) INJECTION [Concomitant]
  7. FIRSTCIN (CEFOZOPRAN HYDROCHLORIDE) INJECTION [Concomitant]
  8. ZYVOX [Concomitant]
  9. ACYCLOVIR [Concomitant]
  10. PHENOBAL (PHENOBARBITAL SODIUM) POWDER [Concomitant]
  11. LASIX (FUROSEMIDE SODIUM) FINE GRANULE [Concomitant]
  12. ALDACTONE A FINE GRANULE [Concomitant]
  13. THYRADIN-S (LEVOTHYROXINE SODIUM) POWDER [Concomitant]
  14. DECADRON (DEXAMETHASONE PHOSPHATE) PER ORAL NOS [Concomitant]
  15. PERDIPINE (NICARDIPINE HYDROCHLORIDE) INJECTION [Concomitant]
  16. ROPION (FLURBIPROFEN AXETIL) INJECTION [Concomitant]
  17. VENILON (IMMUNOGLOBULIN HUMAN NORMAL) INJECTION [Concomitant]
  18. GLYCEOL (SODIUM CHLORIDE, GLYCEROL) INJECTION [Concomitant]
  19. ATARAX-P (HYDROXYZINE HYDROCHLORIDE) INJECTION [Concomitant]
  20. PREDONINE (PREDNISOLONE SODIUM SUCCINATE) INJECTION [Concomitant]
  21. TAZOCIN (PIPERACILLIN SODIUM, TAZOBACTAM SODIUM) INJECTION [Concomitant]
  22. CEFTAZIDIME [Concomitant]
  23. ETOPOSIDE [Concomitant]
  24. L-PAM (MELPHALAN) [Concomitant]
  25. METHOTREXATE [Concomitant]
  26. ANTICANCER DRUG [Concomitant]
  27. ANTIBIOTIC (POLYMYXIN B SULFATE) [Concomitant]

REACTIONS (21)
  - ALTERED STATE OF CONSCIOUSNESS [None]
  - BONE MARROW FAILURE [None]
  - CARDIAC ARREST [None]
  - CATHETER SITE ERYTHEMA [None]
  - CATHETER SITE SWELLING [None]
  - CONVULSION [None]
  - DEPRESSED LEVEL OF CONSCIOUSNESS [None]
  - ERYTHEMA [None]
  - HERPES ZOSTER [None]
  - HYDROCEPHALUS [None]
  - HYPERTHERMIA [None]
  - HYPOPHAGIA [None]
  - INFECTION SUSCEPTIBILITY INCREASED [None]
  - MENINGITIS ASEPTIC [None]
  - NEUTROPENIA [None]
  - PNEUMONIA [None]
  - STAPHYLOCOCCAL BACTERAEMIA [None]
  - SWELLING [None]
  - TACHYPNOEA [None]
  - TRICHOSPORON INFECTION [None]
  - VOMITING [None]
